FAERS Safety Report 5338636-6 (Version None)
Quarter: 2007Q2

REPORT INFORMATION
  Report Type: 
  Country: None (occurrence: None)
  Receive Date: 20070530
  Receipt Date: 20070525
  Transmission Date: 20071010
  Serious: Yes (Hospitalization)
  Sender: FDA-Public Use
  Company Number: PL-BRISTOL-MYERS SQUIBB COMPANY-13672654

PATIENT
  Age: 54 Year
  Sex: Female

DRUGS (16)
  1. ABATACEPT [Suspect]
     Indication: RHEUMATOID ARTHRITIS
     Route: 042
     Dates: start: 20030528
  2. METHOTREXATE [Concomitant]
     Indication: RHEUMATOID ARTHRITIS
     Route: 048
     Dates: start: 20051029
  3. ENCORTON [Concomitant]
     Dates: start: 19950210
  4. FOLIC ACID [Concomitant]
     Dates: start: 19990501
  5. ATORVASTATIN [Concomitant]
     Dates: start: 20051030
  6. LOSEC [Concomitant]
     Dates: start: 20051030
  7. ENALAPRIL MALEATE [Concomitant]
     Dates: start: 20051030
  8. KALIPOZ [Concomitant]
     Dates: start: 20040414
  9. CALCIUM CHLORIDE [Concomitant]
     Dates: start: 20041120
  10. VITRUM [Concomitant]
     Dates: start: 20041120
  11. DICLOFENAC [Concomitant]
     Dates: start: 20050309
  12. ASPIRIN [Concomitant]
     Dates: start: 20051030
  13. METOCARD [Concomitant]
     Dates: start: 20051030
  14. PARACETAMOL [Concomitant]
  15. TRAMADOL HCL [Concomitant]
     Dates: start: 20051208
  16. TICLOPIDINE HCL [Concomitant]
     Dates: start: 20060321

REACTIONS (1)
  - CHOLECYSTITIS [None]
